FAERS Safety Report 24625921 (Version 1)
Quarter: 2024Q4

REPORT INFORMATION
  Report Type: Spontaneous
  Country: US (occurrence: US)
  Receive Date: 20241115
  Receipt Date: 20241115
  Transmission Date: 20250115
  Serious: No
  Sender: PFIZER
  Company Number: US-PFIZER INC-PV202300075351

PATIENT
  Age: 70 Year
  Sex: Female
  Weight: 77.11 kg

DRUGS (2)
  1. TIKOSYN [Suspect]
     Active Substance: DOFETILIDE
     Dosage: 250 UG, 2X/DAY
     Route: 048
     Dates: start: 20230417
  2. TIKOSYN [Suspect]
     Active Substance: DOFETILIDE
     Dosage: 250MCG I TAKE 2 DAY

REACTIONS (3)
  - Product prescribing error [Unknown]
  - Product dispensing error [Unknown]
  - Mental disorder [Unknown]
